FAERS Safety Report 24271953 (Version 1)
Quarter: 2024Q3

REPORT INFORMATION
  Report Type: Report from Study
  Country: FR (occurrence: FR)
  Receive Date: 20240902
  Receipt Date: 20240902
  Transmission Date: 20241016
  Serious: Yes (Life-Threatening, Hospitalization, Other)
  Sender: AUROBINDO
  Company Number: FR-RECORDATI-2023006853

PATIENT
  Age: 40 Year
  Sex: Male

DRUGS (2)
  1. DIAZEPAM [Suspect]
     Active Substance: DIAZEPAM
     Indication: Product used for unknown indication
     Dosage: UNK
     Route: 065
  2. METHADONE [Suspect]
     Active Substance: METHADONE HYDROCHLORIDE
     Indication: Product used for unknown indication
     Dosage: UNK
     Route: 065

REACTIONS (16)
  - Poisoning [Unknown]
  - Haemorrhage intracranial [Recovered/Resolved with Sequelae]
  - Coma [Recovered/Resolved with Sequelae]
  - Acute hepatic failure [Unknown]
  - Acute kidney injury [Unknown]
  - Anterograde amnesia [Unknown]
  - Pneumonia aspiration [Unknown]
  - Paralysis [Recovered/Resolved with Sequelae]
  - Pyramidal tract syndrome [Unknown]
  - Executive dysfunction [Unknown]
  - Cardiac failure [Unknown]
  - Aphasia [Unknown]
  - Confusional state [Unknown]
  - Motor dysfunction [Unknown]
  - Sensory loss [Unknown]
  - Toxicity to various agents [Unknown]
